FAERS Safety Report 6941417-0 (Version None)
Quarter: 2010Q3

REPORT INFORMATION
  Report Type: 
  Country: None (occurrence: None)
  Receive Date: 20100825
  Receipt Date: 20100816
  Transmission Date: 20110219
  Serious: Yes (Hospitalization, Other)
  Sender: FDA-Public Use
  Company Number: CA-ABBOTT-10P-028-0665039-00

PATIENT
  Sex: Female
  Weight: 58.112 kg

DRUGS (15)
  1. HUMIRA [Suspect]
     Indication: RHEUMATOID ARTHRITIS
     Route: 058
     Dates: start: 20100414
  2. DILAUDID [Concomitant]
     Indication: BACK PAIN
     Dosage: 1-2MG EVERY 4-6 HOURS AS NEEDED
     Route: 048
  3. LISINOPRIL [Concomitant]
     Indication: HYPERTENSION
     Route: 048
  4. HYDROCHLOROTHIAZIDE [Concomitant]
     Indication: HYPERTENSION
     Route: 048
  5. ELTROXIN [Concomitant]
     Indication: HYPOTHYROIDISM
     Route: 048
  6. ACTONEL [Concomitant]
     Indication: BONE DISORDER
  7. CALCIUM [Concomitant]
     Indication: MINERAL SUPPLEMENTATION
     Route: 048
  8. VITAMIN D [Concomitant]
     Indication: VITAMIN SUPPLEMENTATION
     Route: 048
  9. FOLIC ACID [Concomitant]
     Indication: PRODUCT USED FOR UNKNOWN INDICATION
     Route: 048
  10. METAMUCIL-2 [Concomitant]
     Indication: CONSTIPATION
     Route: 048
  11. LACTULOSE [Concomitant]
     Indication: CONSTIPATION
     Route: 048
  12. TRAZODONE HCL [Concomitant]
     Indication: INSOMNIA
     Route: 048
  13. PREDNISONE [Concomitant]
     Indication: ARTHRITIS
     Route: 048
  14. ARAVA [Concomitant]
     Indication: ARTHRITIS
     Route: 048
  15. METHOTREXATE [Concomitant]
     Indication: ARTHRITIS
     Route: 048

REACTIONS (2)
  - CONDITION AGGRAVATED [None]
  - WEIGHT BEARING DIFFICULTY [None]
